FAERS Safety Report 25352600 (Version 1)
Quarter: 2025Q2

REPORT INFORMATION
  Report Type: Spontaneous
  Country: US (occurrence: None)
  Receive Date: 20250522
  Receipt Date: 20250522
  Transmission Date: 20250717
  Serious: Yes (Death)
  Sender: FDA-CTU
  Company Number: None

PATIENT
  Age: 30 Year
  Sex: Male
  Weight: 109 kg

DRUGS (1)
  1. KETAMINE [Suspect]
     Active Substance: KETAMINE
     Indication: Agitation
     Route: 040
     Dates: start: 20250522, end: 20250522

REACTIONS (5)
  - Unresponsive to stimuli [None]
  - Vomiting [None]
  - Cardiac arrest [None]
  - Endotracheal intubation complication [None]
  - Procedural failure [None]

NARRATIVE: CASE EVENT DATE: 20250522
